FAERS Safety Report 20898301 (Version 1)
Quarter: 2022Q2

REPORT INFORMATION
  Report Type: Spontaneous
  Country: US (occurrence: US)
  Receive Date: 20220531
  Receipt Date: 20220531
  Transmission Date: 20220720
  Serious: No
  Sender: FDA-Public Use
  Company Number: US-PCCINC-2022-PEL-000222

PATIENT

DRUGS (1)
  1. GABLOFEN [Suspect]
     Active Substance: BACLOFEN
     Indication: Muscle spasticity
     Dosage: 368.7 MCG/DAY
     Route: 037

REACTIONS (3)
  - Weight increased [Unknown]
  - Muscle spasticity [Recovered/Resolved]
  - Feeling abnormal [Recovered/Resolved]
